FAERS Safety Report 5255875-3 (Version None)
Quarter: 2007Q1

REPORT INFORMATION
  Report Type: 
  Country: None (occurrence: None)
  Receive Date: 20070301
  Receipt Date: 20070216
  Transmission Date: 20070707
  Serious: Yes (Other)
  Sender: FDA-Public Use
  Company Number: ORACEA-2007-0010

PATIENT
  Age: 80 Year
  Sex: Female
  Weight: 61.2356 kg

DRUGS (1)
  1. ORACEA [Suspect]
     Indication: DERMATITIS
     Dates: start: 20070101, end: 20070101

REACTIONS (3)
  - CHEST DISCOMFORT [None]
  - DRUG DOSE OMISSION [None]
  - HYPERTENSION [None]
